FAERS Safety Report 9401511 (Version 1)
Quarter: 2013Q3

REPORT INFORMATION
  Report Type: Spontaneous
  Country: CA (occurrence: CA)
  Receive Date: 20130716
  Receipt Date: 20130716
  Transmission Date: 20140515
  Serious: Yes (Other)
  Sender: FDA-Public Use
  Company Number: CA-AMGEN-CANSP2013048948

PATIENT
  Age: 72 Year
  Sex: Male

DRUGS (1)
  1. NEUPOGEN [Suspect]
     Indication: LUNG NEOPLASM MALIGNANT
     Dosage: 1ML/300MCG, UNK
     Route: 065
     Dates: start: 20110303

REACTIONS (2)
  - Syncope [Not Recovered/Not Resolved]
  - Head injury [Not Recovered/Not Resolved]
